FAERS Safety Report 4930715-8 (Version None)
Quarter: 2006Q1

REPORT INFORMATION
  Report Type: 
  Country: None (occurrence: None)
  Receive Date: 20060227
  Receipt Date: 20060213
  Transmission Date: 20060701
  Serious: Yes (Other)
  Sender: FDA-Public Use
  Company Number: 2006023749

PATIENT
  Age: 77 Year
  Sex: Female
  Weight: 62.5964 kg

DRUGS (3)
  1. DETROL LA [Suspect]
     Indication: POLLAKIURIA
     Dosage: (2 MG, 1 IN 1 D), ORAL
     Route: 048
     Dates: start: 20040101
  2. ARICEPT [Suspect]
     Indication: DEMENTIA ALZHEIMER'S TYPE
     Dates: start: 20060101
  3. TYLENOL PM (DIPHENHYDRAMINE, PARACETAMOL) [Suspect]
     Indication: SLEEP DISORDER

REACTIONS (6)
  - DEMENTIA ALZHEIMER'S TYPE [None]
  - DIARRHOEA [None]
  - NOCTURIA [None]
  - OSTEOPOROSIS [None]
  - SLEEP DISORDER [None]
  - URINARY INCONTINENCE [None]
